FAERS Safety Report 15795124 (Version 2)
Quarter: 2019Q1

REPORT INFORMATION
  Report Type: Report from Study
  Country: US (occurrence: US)
  Receive Date: 20190107
  Receipt Date: 20190204
  Transmission Date: 20190417
  Serious: Yes (Hospitalization)
  Sender: FDA-Public Use
  Company Number: US-ACTELION-A-US2019-184563

PATIENT
  Age: 52 Year
  Sex: Female
  Weight: 88.89 kg

DRUGS (1)
  1. OPSUMIT [Suspect]
     Active Substance: MACITENTAN
     Indication: PULMONARY ARTERIAL HYPERTENSION
     Dosage: 10 MG, QD
     Route: 048

REACTIONS (3)
  - Road traffic accident [Unknown]
  - Pain [Unknown]
  - Spinal fracture [Unknown]

NARRATIVE: CASE EVENT DATE: 20181106
